FAERS Safety Report 5463046-0 (Version None)
Quarter: 2007Q3

REPORT INFORMATION
  Report Type: 
  Country: None (occurrence: None)
  Receive Date: 20070918
  Receipt Date: 20070918
  Transmission Date: 20080115
  Serious: Yes (Other)
  Sender: FDA-Public Use
  Company Number: None

PATIENT
  Sex: Male
  Weight: 86.1834 kg

DRUGS (1)
  1. ZOLPIDEM TARTRATE [Suspect]
     Indication: INSOMNIA
     Dosage: 10 MG HS PRN PO
     Route: 048
     Dates: start: 20030101, end: 20070606

REACTIONS (8)
  - AMNESIA [None]
  - COORDINATION ABNORMAL [None]
  - DEHYDRATION [None]
  - DYSARTHRIA [None]
  - GAIT DISTURBANCE [None]
  - HYPOKALAEMIA [None]
  - MENTAL STATUS CHANGES [None]
  - THINKING ABNORMAL [None]
